FAERS Safety Report 10072835 (Version 1)
Quarter: 2014Q2

REPORT INFORMATION
  Report Type: Spontaneous
  Country: CO (occurrence: CO)
  Receive Date: 20140411
  Receipt Date: 20140411
  Transmission Date: 20141212
  Serious: Yes (Death, Hospitalization)
  Sender: FDA-Public Use
  Company Number: CO-UCBSA-117462

PATIENT
  Age: 59 Year
  Sex: Female

DRUGS (7)
  1. NEUPRO [Suspect]
     Indication: PARKINSON^S DISEASE
     Dosage: DAILY DOSE: 4 MG
     Route: 062
     Dates: start: 20121120, end: 20140130
  2. STALEVO [Concomitant]
     Dosage: DAILY
  3. ACETYLSALICYLIC ACID [Concomitant]
     Dosage: DAILY
  4. SPIRONOLACTONE [Concomitant]
     Dosage: DAILY
  5. FOLIC ACID [Concomitant]
     Dosage: DAILY
  6. LYRICA [Concomitant]
     Dosage: DAILY DOSE: 75 MG
  7. TRAZADONE [Concomitant]
     Dosage: DAILY

REACTIONS (5)
  - Brain death [Fatal]
  - Loss of consciousness [Unknown]
  - Muscle rigidity [Unknown]
  - Influenza [Unknown]
  - Asthenia [Unknown]
